FAERS Safety Report 7800067-4 (Version None)
Quarter: 2011Q4

REPORT INFORMATION
  Report Type: 
  Country: None (occurrence: None)
  Receive Date: 20111006
  Receipt Date: 20110927
  Transmission Date: 20120403
  Serious: Yes (Hospitalization)
  Sender: FDA-Public Use
  Company Number: AU-JNJFOC-20110905377

PATIENT
  Sex: Male
  Weight: 74 kg

DRUGS (11)
  1. GOLIMUMAB [Suspect]
     Route: 042
     Dates: start: 20110818
  2. PREDNISONE [Concomitant]
     Indication: RHEUMATOID ARTHRITIS
     Route: 048
     Dates: start: 19910401
  3. LORATADINE [Concomitant]
     Indication: PROPHYLAXIS
     Route: 048
     Dates: start: 20110818
  4. IMODIUM [Concomitant]
     Indication: DIARRHOEA
     Route: 048
     Dates: start: 20090301
  5. PLACEBO [Suspect]
     Indication: RHEUMATOID ARTHRITIS
     Route: 042
     Dates: start: 20101011
  6. CHLORSIG [Concomitant]
     Route: 047
     Dates: start: 20101104
  7. ACETAMINOPHEN [Concomitant]
     Indication: PROPHYLAXIS
     Route: 048
     Dates: start: 20110818
  8. GOLIMUMAB [Suspect]
     Indication: RHEUMATOID ARTHRITIS
     Route: 042
     Dates: start: 20101011
  9. FOLIC ACID [Concomitant]
     Indication: PROPHYLAXIS
     Dates: start: 19910401
  10. PLACEBO [Suspect]
     Route: 042
     Dates: start: 20110818
  11. ZOVIRAX [Concomitant]
     Indication: HERPES SIMPLEX
     Route: 047
     Dates: start: 20110203

REACTIONS (1)
  - RHEUMATOID ARTHRITIS [None]
